FAERS Safety Report 6643402-5 (Version None)
Quarter: 2010Q1

REPORT INFORMATION
  Report Type: 
  Country: None (occurrence: None)
  Receive Date: 20100319
  Receipt Date: 20100305
  Transmission Date: 20100710
  Serious: Yes (Disabling)
  Sender: FDA-Public Use
  Company Number: US-GILEAD-2010-0026808

PATIENT
  Sex: Female
  Weight: 70.37 kg

DRUGS (15)
  1. LETAIRIS [Suspect]
     Indication: PULMONARY ARTERIAL HYPERTENSION
     Route: 048
     Dates: start: 20100111, end: 20100123
  2. REVATIO [Concomitant]
  3. METOPROLOL TARTRATE [Concomitant]
  4. DIGOXIN [Concomitant]
  5. TRICOR [Concomitant]
  6. TORSEMIDE [Concomitant]
  7. FUROSEMIDE [Concomitant]
  8. WARFARIN SODIUM [Concomitant]
  9. METOLAZONE [Concomitant]
  10. OXYGEN [Concomitant]
  11. APIDRA [Concomitant]
  12. LANTUS [Concomitant]
  13. LEVOTHYROXINE SODIUM [Concomitant]
  14. PANTOPRAZOLE [Concomitant]
  15. POTASSIUM CHLORIDE [Concomitant]

REACTIONS (4)
  - DYSPNOEA [None]
  - FATIGUE [None]
  - OEDEMA PERIPHERAL [None]
  - PALPITATIONS [None]
